FAERS Safety Report 25188551 (Version 1)
Quarter: 2025Q2

REPORT INFORMATION
  Report Type: Report from Study
  Country: CA (occurrence: CA)
  Receive Date: 20250411
  Receipt Date: 20250411
  Transmission Date: 20250716
  Serious: Yes (Other)
  Sender: MERZ
  Company Number: CA-ACORDA THERAPEUTICS IRELAND LIMITED-ACO_177213_2025

PATIENT

DRUGS (1)
  1. DALFAMPRIDINE [Suspect]
     Active Substance: DALFAMPRIDINE
     Indication: Secondary progressive multiple sclerosis
     Dosage: 10 MILLIGRAM, Q 12 HRS
     Route: 048
     Dates: start: 20250304

REACTIONS (3)
  - Multiple sclerosis [Unknown]
  - Tremor [Unknown]
  - Drug ineffective [Unknown]
